FAERS Safety Report 8506120-4 (Version None)
Quarter: 2012Q3

REPORT INFORMATION
  Report Type: 
  Country: None (occurrence: None)
  Receive Date: 20120712
  Receipt Date: 20120701
  Transmission Date: 20120928
  Serious: Yes (Other)
  Sender: FDA-Public Use
  Company Number: IN-ROCHE-1083917

PATIENT
  Age: 25 Year
  Sex: Male

DRUGS (1)
  1. AVASTIN [Suspect]
     Indication: EALES' DISEASE
     Dosage: 1.25 MG/0.05 ML
     Route: 050

REACTIONS (1)
  - RETINAL DETACHMENT [None]
